FAERS Safety Report 6763847-2 (Version None)
Quarter: 2010Q2

REPORT INFORMATION
  Report Type: 
  Country: None (occurrence: None)
  Receive Date: 20100610
  Receipt Date: 20100604
  Transmission Date: 20101027
  Serious: Yes (Other)
  Sender: FDA-Public Use
  Company Number: JP-PFIZER INC-2010067792

PATIENT
  Age: 73 Year
  Sex: Female

DRUGS (6)
  1. ATARAX [Suspect]
     Indication: LYMPHOMA
     Dosage: 25 MG, 1X/DAY
     Route: 030
     Dates: start: 20100527, end: 20100527
  2. RITUXAN [Concomitant]
     Indication: LYMPHOMA
     Dosage: UNK
     Route: 041
     Dates: start: 20100101, end: 20100528
  3. ENDOXAN [Concomitant]
     Indication: LYMPHOMA
     Dosage: UNK
     Route: 041
     Dates: start: 20100101, end: 20100528
  4. ADRIACIN [Concomitant]
     Indication: LYMPHOMA
     Dosage: UNK
     Dates: start: 20100101, end: 20100528
  5. ONCOVIN [Concomitant]
     Indication: LYMPHOMA
     Dosage: UNK
     Dates: start: 20100101, end: 20100528
  6. PREDONINE [Concomitant]
     Indication: LYMPHOMA
     Dosage: UNK
     Route: 048
     Dates: start: 20100101, end: 20100528

REACTIONS (1)
  - RADIAL NERVE PALSY [None]
